FAERS Safety Report 25527491 (Version 1)
Quarter: 2025Q3

REPORT INFORMATION
  Report Type: Spontaneous
  Country: GB (occurrence: GB)
  Receive Date: 20250708
  Receipt Date: 20250708
  Transmission Date: 20251020
  Serious: Yes (Hospitalization, Other)
  Sender: NOVO NORDISK
  Company Number: None

PATIENT
  Age: 48 Year
  Sex: Male
  Weight: 96 kg

DRUGS (3)
  1. WEGOVY [Suspect]
     Active Substance: SEMAGLUTIDE
     Indication: Weight loss poor
     Dosage: 2.4 MG, QW
     Dates: start: 20230301, end: 20241001
  2. AMLODIPINE [Concomitant]
     Active Substance: AMLODIPINE BESYLATE
     Indication: Hypertension
  3. LISDEXAMFETAMINE DIMESYLATE [Concomitant]
     Active Substance: LISDEXAMFETAMINE DIMESYLATE
     Indication: Attention deficit hyperactivity disorder
     Dates: start: 20240831

REACTIONS (3)
  - Pancreatitis [Recovered/Resolved]
  - Cholecystectomy [Recovered/Resolved]
  - Cholelithiasis [Unknown]

NARRATIVE: CASE EVENT DATE: 20241127
